FAERS Safety Report 15962464 (Version 1)
Quarter: 2019Q1

REPORT INFORMATION
  Report Type: Report from Study
  Country: US (occurrence: US)
  Receive Date: 20190214
  Receipt Date: 20190214
  Transmission Date: 20190417
  Serious: Yes (Other)
  Sender: FDA-Public Use
  Company Number: US-JNJFOC-20190213870

PATIENT
  Sex: Male

DRUGS (1)
  1. IMBRUVICA [Suspect]
     Active Substance: IBRUTINIB
     Indication: CHRONIC LYMPHOCYTIC LEUKAEMIA
     Route: 048
     Dates: start: 20190201

REACTIONS (9)
  - Nasal crusting [Unknown]
  - Stomatitis [Unknown]
  - Arthralgia [Unknown]
  - Basal cell carcinoma [Unknown]
  - Haemorrhage [Unknown]
  - Scab [Unknown]
  - Blood pressure increased [Unknown]
  - Epistaxis [Unknown]
  - Petechiae [Unknown]
